FAERS Safety Report 5376563-9 (Version None)
Quarter: 2007Q2

REPORT INFORMATION
  Report Type: 
  Country: None (occurrence: None)
  Receive Date: 20070629
  Receipt Date: 20070613
  Transmission Date: 20071010
  Serious: Yes (Hospitalization)
  Sender: FDA-Public Use
  Company Number: DSA_29958_2007

PATIENT
  Age: 61 Year
  Sex: Male

DRUGS (4)
  1. RENIVACE (RENIVACE) [Suspect]
     Indication: HYPERTENSION
     Dosage: 2.5 MG QD ORAL
     Route: 048
  2. BAYASPIRIN (BAYASPIRIN) [Suspect]
     Indication: ANTICOAGULANT THERAPY
     Dosage: 100 MG QD ORAL
     Route: 048
  3. SELOKEN /00376902/ (SELOKEN) [Suspect]
     Indication: ARRHYTHMIA
     Dosage: 20 MG TID ORAL
     Route: 048
  4. SIGMART (SIGMART) [Suspect]
     Indication: ARRHYTHMIA
     Dosage: 5 MG TID ORAL
     Route: 048

REACTIONS (2)
  - CARDIAC DISORDER [None]
  - LIVER FUNCTION TEST ABNORMAL [None]
